FAERS Safety Report 7776588-X (Version None)
Quarter: 2011Q3

REPORT INFORMATION
  Report Type: 
  Country: None (occurrence: None)
  Receive Date: 20110926
  Receipt Date: 20110914
  Transmission Date: 20111222
  Serious: Yes (Hospitalization, Other)
  Sender: FDA-Public Use
  Company Number: US-JNJFOC-20110906976

PATIENT
  Sex: Female

DRUGS (6)
  1. PRAVASTATIN [Concomitant]
     Indication: BLOOD CHOLESTEROL
     Route: 065
  2. DILANTIN [Concomitant]
     Indication: PRODUCT USED FOR UNKNOWN INDICATION
     Route: 065
  3. HALDOL [Suspect]
     Indication: PRODUCT USED FOR UNKNOWN INDICATION
     Route: 030
     Dates: start: 20110815
  4. INVEGA SUSTENNA [Suspect]
     Indication: PRODUCT USED FOR UNKNOWN INDICATION
     Dosage: 117 MG INJECTION IN EACH ARM
     Route: 030
     Dates: start: 20110906
  5. INDERAL [Concomitant]
     Indication: TREMOR
     Route: 065
  6. LORATADINE [Concomitant]
     Indication: PRODUCT USED FOR UNKNOWN INDICATION
     Route: 065

REACTIONS (4)
  - ANKLE FRACTURE [None]
  - SEDATION [None]
  - FALL [None]
  - WRONG TECHNIQUE IN DRUG USAGE PROCESS [None]
